FAERS Safety Report 6445927-4 (Version None)
Quarter: 2009Q4

REPORT INFORMATION
  Report Type: 
  Country: None (occurrence: None)
  Receive Date: 20091119
  Receipt Date: 20090120
  Transmission Date: 20100525
  Serious: No
  Sender: FDA-Public Use
  Company Number: A0764318A

PATIENT
  Sex: Female

DRUGS (2)
  1. WELLBUTRIN SR [Suspect]
     Indication: DEPRESSION
     Dosage: 100MG TWICE PER DAY
     Route: 048
     Dates: start: 20081211
  2. CYMBALTA [Concomitant]

REACTIONS (1)
  - DRUG INEFFECTIVE [None]
